FAERS Safety Report 12605510 (Version 1)
Quarter: 2016Q3

REPORT INFORMATION
  Report Type: Spontaneous
  Country: KR (occurrence: KR)
  Receive Date: 20160729
  Receipt Date: 20160729
  Transmission Date: 20161109
  Serious: Yes (Other)
  Sender: FDA-Public Use
  Company Number: KR-BRISTOL-MYERS SQUIBB COMPANY-17230681

PATIENT
  Age: 17 Year
  Sex: Female

DRUGS (2)
  1. OLANZAPINE. [Concomitant]
     Active Substance: OLANZAPINE
     Indication: PRODUCT USED FOR UNKNOWN INDICATION
     Dosage: UNK
     Route: 030
  2. ABILIFY [Suspect]
     Active Substance: ARIPIPRAZOLE
     Indication: SCHIZOPHRENIA
     Dosage: 5 MG, UNK
     Route: 048

REACTIONS (1)
  - Neuroleptic malignant syndrome [Not Recovered/Not Resolved]
